FAERS Safety Report 24530746 (Version 1)
Quarter: 2024Q4

REPORT INFORMATION
  Report Type: Spontaneous
  Country: US (occurrence: US)
  Receive Date: 20241021
  Receipt Date: 20241021
  Transmission Date: 20250114
  Serious: No
  Sender: BRISTOL-MYERS SQUIBB COMPANY
  Company Number: US-BRISTOL-MYERS SQUIBB COMPANY-2024-165305

PATIENT
  Age: 41 Year
  Sex: Female

DRUGS (3)
  1. SPRYCEL [Suspect]
     Active Substance: DASATINIB
     Indication: Chronic myeloid leukaemia
  2. NILOTINIB [Suspect]
     Active Substance: NILOTINIB
     Indication: Chronic myeloid leukaemia
  3. BOSUTINIB [Suspect]
     Active Substance: BOSUTINIB
     Indication: Chronic myeloid leukaemia

REACTIONS (9)
  - Fatigue [Unknown]
  - Malaise [Unknown]
  - Dry mouth [Unknown]
  - Dry eye [Unknown]
  - Sinusitis [Unknown]
  - Upper respiratory tract infection [Unknown]
  - White blood cell count decreased [Unknown]
  - Fluid retention [Unknown]
  - Skin hyperpigmentation [Unknown]
